FAERS Safety Report 8816513 (Version 1)
Quarter: 2012Q4

REPORT INFORMATION
  Report Type: Spontaneous
  Country: DK (occurrence: None)
  Receive Date: 20120927
  Receipt Date: 20120927
  Transmission Date: 20130627
  Serious: Yes (Other)
  Sender: FDA-Public Use
  Company Number: 2012MA011553

PATIENT
  Age: 64 Year
  Sex: Male

DRUGS (5)
  1. PHENYTOIN [Suspect]
  2. PHENOBARBITAL [Suspect]
  3. LAMOTRIGINE (LAMOTRIGINE) [Suspect]
     Route: 048
     Dates: start: 20120512
  4. OMEPRAZOLE [Concomitant]
  5. ADCAL-D3 [Concomitant]

REACTIONS (9)
  - Vitreous detachment [None]
  - Dry mouth [None]
  - Fatigue [None]
  - Headache [None]
  - Vision blurred [None]
  - Diplopia [None]
  - Eyelid oedema [None]
  - Visual impairment [None]
  - Photopsia [None]
